FAERS Safety Report 6692113-9 (Version None)
Quarter: 2010Q2

REPORT INFORMATION
  Report Type: 
  Country: None (occurrence: None)
  Receive Date: 20100422
  Receipt Date: 20091019
  Transmission Date: 20101027
  Serious: No
  Sender: FDA-Public Use
  Company Number: US-ASTRAZENECA-2009SE20983

PATIENT
  Age: 76 Year
  Sex: Female

DRUGS (7)
  1. TOPROL-XL [Suspect]
     Indication: HYPERTENSION
     Route: 048
  2. TOPROL-XL [Suspect]
     Route: 048
     Dates: start: 20090901
  3. TIAZAC [Suspect]
     Indication: HYPERTENSION
     Route: 048
     Dates: start: 20030101, end: 20081114
  4. TIAZAC [Suspect]
     Route: 048
  5. LISINOPRIL [Concomitant]
     Indication: HYPERTENSION
  6. ASPIRIN [Concomitant]
  7. VITAMIN D [Concomitant]

REACTIONS (8)
  - AMNESIA [None]
  - CHROMATURIA [None]
  - DYSPNOEA [None]
  - FATIGUE [None]
  - INSOMNIA [None]
  - NIGHTMARE [None]
  - OEDEMA PERIPHERAL [None]
  - VISION BLURRED [None]
